FAERS Safety Report 8881164 (Version 1)
Quarter: 2012Q4

REPORT INFORMATION
  Report Type: 
  Country: BR (occurrence: BR)
  Receive Date: 20121031
  Receipt Date: 20121031
  Transmission Date: 20130627
  Serious: Yes (Other)
  Sender: FDA-Public Use
  Company Number: PHHY2012BR097915

PATIENT
  Age: 77 Year
  Sex: Male

DRUGS (2)
  1. PROLOPA [Suspect]
     Dosage: 2 DF, QID
     Route: 048
  2. COMTAN [Suspect]
     Dosage: 1 DF, QID
     Route: 048

REACTIONS (6)
  - Parkinson^s disease [Unknown]
  - Diabetes mellitus [Unknown]
  - Hypertension [Unknown]
  - Thyroid disorder [Unknown]
  - Blood cholesterol abnormal [Unknown]
  - Incontinence [Unknown]
